FAERS Safety Report 4868117-5 (Version None)
Quarter: 2005Q4

REPORT INFORMATION
  Report Type: 
  Country: None (occurrence: None)
  Receive Date: 20051229
  Receipt Date: 20051223
  Transmission Date: 20060501
  Serious: No
  Sender: FDA-Public Use
  Company Number: 2005PK02550

PATIENT
  Age: 327 Month
  Sex: Female
  Weight: 71.4 kg

DRUGS (8)
  1. SEROQUEL [Suspect]
     Indication: SCHIZOPHRENIA
     Route: 048
     Dates: start: 20040101, end: 20041101
  2. SEROQUEL [Suspect]
     Route: 048
     Dates: start: 20041101
  3. SEROQUEL [Suspect]
     Route: 048
  4. SEROQUEL [Suspect]
     Route: 048
     Dates: start: 20050101
  5. SEROQUEL [Suspect]
     Route: 048
     Dates: start: 20050601, end: 20050801
  6. SEROQUEL [Suspect]
     Dosage: POSTPARTAL UP TO 800 MG/DAY
     Route: 048
     Dates: start: 20050801
  7. CHLORPROTHIXEN [Concomitant]
     Route: 048
     Dates: end: 20041101
  8. LEVOMEPROMAZIN [Concomitant]
     Indication: RESTLESSNESS
     Route: 048
     Dates: start: 20040101, end: 20040101

REACTIONS (4)
  - DRUG EXPOSURE DURING PREGNANCY [None]
  - LEUKOPENIA [None]
  - NORMAL NEWBORN [None]
  - PREGNANCY [None]
